FAERS Safety Report 6529071-3 (Version None)
Quarter: 2009Q4

REPORT INFORMATION
  Report Type: 
  Country: None (occurrence: None)
  Receive Date: 20091223
  Receipt Date: 20091208
  Transmission Date: 20100525
  Serious: Yes (Hospitalization)
  Sender: FDA-Public Use
  Company Number: 8054408

PATIENT
  Sex: Female

DRUGS (7)
  1. CERTOLIZUMAB PEGOL      (CERTOLIZUMAB PEGOL) [Suspect]
     Indication: RHEUMATOID ARTHRITIS
     Dosage: SEE IMAGE
     Route: 058
     Dates: start: 20050801, end: 20060717
  2. CERTOLIZUMAB PEGOL      (CERTOLIZUMAB PEGOL) [Suspect]
     Indication: RHEUMATOID ARTHRITIS
     Dosage: SEE IMAGE
     Route: 058
     Dates: start: 20060802, end: 20071204
  3. CERTOLIZUMAB PEGOL      (CERTOLIZUMAB PEGOL) [Suspect]
     Indication: RHEUMATOID ARTHRITIS
     Dosage: SEE IMAGE
     Route: 058
     Dates: start: 20071218, end: 20091102
  4. DICLOFENAC [Concomitant]
  5. HYPOTHIAZID [Concomitant]
  6. POTASSIUM MAGNESIUM ASPARTATE [Concomitant]
  7. ENALAPRIL [Concomitant]

REACTIONS (6)
  - ARTERIOSCLEROSIS CORONARY ARTERY [None]
  - HEPATOMEGALY [None]
  - HYPERTENSION [None]
  - OEDEMA PERIPHERAL [None]
  - RHEUMATOID ARTHRITIS [None]
  - SINUSITIS [None]
